FAERS Safety Report 7888246-1 (Version None)
Quarter: 2011Q4

REPORT INFORMATION
  Report Type: 
  Country: None (occurrence: None)
  Receive Date: 20111103
  Receipt Date: 20111028
  Transmission Date: 20120403
  Serious: Yes (Hospitalization, Other)
  Sender: FDA-Public Use
  Company Number: US-SANOFI-AVENTIS-2011SA071362

PATIENT
  Sex: Female

DRUGS (16)
  1. PREDNISONE [Concomitant]
  2. LOVENOX [Suspect]
     Indication: THROMBOSIS
     Route: 058
     Dates: start: 20110801, end: 20110916
  3. ALL OTHER THERAPEUTIC PRODUCTS [Concomitant]
  4. LISINOPRIL [Concomitant]
  5. FOLIC ACID [Concomitant]
  6. LIPITOR [Concomitant]
  7. PROPRANOLOL [Concomitant]
  8. TRICOR [Concomitant]
  9. DIGOXIN [Concomitant]
  10. LORAZEPAM [Concomitant]
  11. CALCIUM [Concomitant]
  12. VICODIN [Concomitant]
  13. ASPIRIN [Concomitant]
  14. OMEPRAZOLE [Concomitant]
  15. COUMADIN [Concomitant]
  16. GLIMEPIRIDE [Concomitant]

REACTIONS (8)
  - FALL [None]
  - MALAISE [None]
  - LACERATION [None]
  - DIARRHOEA [None]
  - RECTAL HAEMORRHAGE [None]
  - HYPOTENSION [None]
  - DIZZINESS [None]
  - INJECTION SITE HAEMATOMA [None]
